FAERS Safety Report 20941921 (Version 1)
Quarter: 2022Q2

REPORT INFORMATION
  Report Type: Spontaneous
  Country: BR (occurrence: BR)
  Receive Date: 20220610
  Receipt Date: 20220610
  Transmission Date: 20220721
  Serious: Yes (Other)
  Sender: FDA-Public Use
  Company Number: BR-STRIDES ARCOLAB LIMITED-2022SP006796

PATIENT

DRUGS (3)
  1. ETOPOSIDE [Suspect]
     Active Substance: ETOPOSIDE
     Indication: Soft tissue sarcoma
     Dosage: 100 MILLIGRAM/SQ. METER FOR 4-5DAYS
     Route: 065
  2. IFOSFAMIDE [Suspect]
     Active Substance: IFOSFAMIDE
     Indication: Soft tissue sarcoma
     Dosage: 1800 MILLIGRAM/SQ. METER FOR 3-5DAYS
     Route: 065
  3. MESNA [Concomitant]
     Active Substance: MESNA
     Indication: Soft tissue sarcoma
     Dosage: 1800 MILLIGRAM/SQ. METER FOR 3-5DAYS EVERY 21DAYS
     Route: 065

REACTIONS (2)
  - Acute kidney injury [Recovered/Resolved]
  - Off label use [Unknown]
